FAERS Safety Report 5610456-4 (Version None)
Quarter: 2008Q1

REPORT INFORMATION
  Report Type: 
  Country: None (occurrence: None)
  Receive Date: 20080128
  Receipt Date: 20080116
  Transmission Date: 20080703
  Serious: Yes (Hospitalization)
  Sender: FDA-Public Use
  Company Number: 08-000094

PATIENT
  Age: 57 Year
  Sex: Female
  Weight: 56.7 kg

DRUGS (6)
  1. PYRIDIUM(PHENAZOPYRIDINE HYDROCHLORIDE) TABLET, UNIT [Suspect]
     Indication: BLADDER SPASM
     Dosage: 200 MG, SINGLE; ORAL
     Route: 048
     Dates: start: 20080109, end: 20080109
  2. PREMARIN [Concomitant]
  3. LEVBID (HYOSCYAMINE SULFATE) [Concomitant]
  4. PROPYLTHIOURACIL [Concomitant]
  5. HYDROCHLOROTHIAZIDE [Concomitant]
  6. PRELIEF (CALCIUM GLYCEROPHOSPHATE) [Concomitant]

REACTIONS (5)
  - BLOOD PRESSURE INCREASED [None]
  - CHEST DISCOMFORT [None]
  - DIZZINESS [None]
  - DYSPNOEA [None]
  - NAUSEA [None]
